FAERS Safety Report 4945452-3 (Version None)
Quarter: 2006Q1

REPORT INFORMATION
  Report Type: 
  Country: None (occurrence: None)
  Receive Date: 20060316
  Receipt Date: 20051004
  Transmission Date: 20060701
  Serious: Yes (Hospitalization)
  Sender: FDA-Public Use
  Company Number: JP-JPN-A20052357

PATIENT
  Age: 75 Year
  Sex: Male
  Weight: 71 kg

DRUGS (7)
  1. VALTREX [Suspect]
     Indication: HERPES ZOSTER
     Dosage: 500MG THREE TIMES PER DAY
     Route: 048
     Dates: start: 20050929, end: 20051001
  2. CYANOCOBALAMIN [Concomitant]
     Dosage: 3TAB PER DAY
     Route: 048
  3. PRECIPITATED CALCIUM CARBONATE [Concomitant]
     Dosage: 4.5G PER DAY
     Route: 048
  4. ASPIRIN [Concomitant]
     Indication: ILIAC ARTERY THROMBOSIS
     Dosage: 100MG PER DAY
     Route: 048
  5. FORSENID [Concomitant]
     Indication: CONSTIPATION
     Dosage: 12MG PER DAY
     Route: 048
  6. LENDORMIN [Concomitant]
     Indication: INSOMNIA
     Dosage: 1TAB PER DAY
     Route: 048
  7. RANITAC [Concomitant]
     Dosage: 150MG PER DAY
     Route: 048

REACTIONS (6)
  - DELIRIUM [None]
  - ENCEPHALITIS [None]
  - HALLUCINATION [None]
  - RESTLESSNESS [None]
  - TINNITUS [None]
  - VERTIGO [None]
